FAERS Safety Report 8764894 (Version 2)
Quarter: 2013Q4

REPORT INFORMATION
  Report Type: Report from Study
  Country: US (occurrence: US)
  Receive Date: 20120901
  Receipt Date: 20131105
  Transmission Date: 20140711
  Serious: Yes (Other)
  Sender: FDA-Public Use
  Company Number: US-009507513-1208USA008698

PATIENT
  Sex: Male

DRUGS (2)
  1. PEG-INTRON [Suspect]
     Indication: CHRONIC HEPATITIS C
     Dosage: UNK
     Dates: start: 20110626
  2. REBETOL [Suspect]
     Dosage: UNK
     Dates: start: 20120626

REACTIONS (9)
  - Mental disorder [Unknown]
  - Pyrexia [Unknown]
  - Vomiting [Unknown]
  - Haematemesis [Unknown]
  - Mouth haemorrhage [Unknown]
  - Anxiety [Unknown]
  - Depression [Unknown]
  - Aggression [Unknown]
  - Anger [Unknown]
